FAERS Safety Report 7110284-7 (Version None)
Quarter: 2010Q4

REPORT INFORMATION
  Report Type: 
  Country: None (occurrence: None)
  Receive Date: 20101117
  Receipt Date: 20101117
  Transmission Date: 20110411
  Serious: Yes (Disabling)
  Sender: FDA-Public Use
  Company Number: None

PATIENT
  Age: 53 Year
  Sex: Female
  Weight: 68.0396 kg

DRUGS (3)
  1. TOVIAZ [Suspect]
     Indication: INCONTINENCE
     Dosage: 5 MG, THEN 8 MG 1 TIME DAILY ORAL
     Route: 048
     Dates: start: 20100801
  2. TOVIAZ [Suspect]
     Indication: INCONTINENCE
     Dosage: 5 MG, THEN 8 MG 1 TIME DAILY ORAL
     Route: 048
     Dates: start: 20100901
  3. TOVIAZ [Suspect]
     Indication: INCONTINENCE
     Dosage: 5 MG, THEN 8 MG 1 TIME DAILY ORAL
     Route: 048
     Dates: start: 20101001

REACTIONS (2)
  - DRUG INEFFECTIVE [None]
  - VISION BLURRED [None]
